FAERS Safety Report 5026732-2 (Version None)
Quarter: 2006Q2

REPORT INFORMATION
  Report Type: 
  Country: None (occurrence: None)
  Receive Date: 20060501
  Receipt Date: 20060205
  Transmission Date: 20061013
  Serious: No
  Sender: FDA-Public Use
  Company Number: 200610695BWH

PATIENT
  Sex: Male

DRUGS (2)
  1. NEXAVAR [Suspect]
     Indication: RENAL CELL CARCINOMA STAGE UNSPECIFIED
     Dosage: 400 MG, BID, ORAL
     Route: 048
     Dates: start: 20060127
  2. PAIN MEDICATION (NOS) [Concomitant]

REACTIONS (2)
  - PRURITUS [None]
  - RASH [None]
